FAERS Safety Report 5600781-5 (Version None)
Quarter: 2008Q1

REPORT INFORMATION
  Report Type: 
  Country: None (occurrence: None)
  Receive Date: 20080123
  Receipt Date: 20080115
  Transmission Date: 20080703
  Serious: Yes (Life-Threatening, Other)
  Sender: FDA-Public Use
  Company Number: BE-PFIZER INC-2007104258

PATIENT
  Sex: Female
  Weight: 58 kg

DRUGS (2)
  1. MEDROL [Suspect]
     Indication: SINUSITIS
     Route: 048
     Dates: start: 20071212, end: 20071212
  2. AUGMENTIN '250' [Concomitant]
     Indication: SINUSITIS
     Route: 048

REACTIONS (2)
  - ANAPHYLACTIC SHOCK [None]
  - SYNCOPE [None]
